FAERS Safety Report 7313142-8 (Version None)
Quarter: 2011Q1

REPORT INFORMATION
  Report Type: 
  Country: None (occurrence: None)
  Receive Date: 20110216
  Receipt Date: 20110216
  Transmission Date: 20110831
  Serious: Yes (Other)
  Sender: FDA-Public Use
  Company Number: None

PATIENT
  Age: 50 Year
  Sex: Female
  Weight: 68.0396 kg

DRUGS (2)
  1. HALOBETASOL PROPIONATE [Suspect]
     Indication: ACNE
     Dosage: APPLY TO AFFECTED AREA TWICE DAILY TOP
     Route: 061
     Dates: start: 20101220, end: 20110208
  2. HALOBETASOL PROPIONATE [Suspect]
     Indication: ACNE
     Dosage: APPLY TO AFFECTED AREA TWICE DAILY TOP
     Route: 061
     Dates: start: 20100822, end: 20100825

REACTIONS (2)
  - ACNE [None]
  - INCORRECT DOSE ADMINISTERED [None]
